FAERS Safety Report 23408360 (Version 1)
Quarter: 2024Q1

REPORT INFORMATION
  Report Type: Spontaneous
  Country: KR (occurrence: KR)
  Receive Date: 20240117
  Receipt Date: 20240117
  Transmission Date: 20240409
  Serious: Yes (Other)
  Sender: FDA-Public Use
  Company Number: KR-OPELLA-2024OHG001382

PATIENT
  Age: 37 Year
  Sex: Female

DRUGS (5)
  1. XYZAL [Suspect]
     Active Substance: LEVOCETIRIZINE DIHYDROCHLORIDE
     Indication: Nasopharyngitis
     Dosage: 1 DOSAGE FORM, 3X/DAY (TID)
     Route: 048
     Dates: start: 20200705, end: 20200709
  2. CHLORPHENIRAMINE MALEATE\DIHYDROCODEINE BITARTRATE\GUAIFENESIN\METHYLE [Suspect]
     Active Substance: CHLORPHENIRAMINE MALEATE\DIHYDROCODEINE BITARTRATE\GUAIFENESIN\METHYLEPHEDRINE HYDROCHLORIDE, (+/-)
     Indication: Product used for unknown indication
     Route: 048
  3. CEFACLOR [Suspect]
     Active Substance: CEFACLOR
     Indication: Nasopharyngitis
     Dosage: 1 DOSAGE FORM, 2X/DAY (BID)
     Dates: start: 20200705, end: 20200709
  4. ALMAGATE [Suspect]
     Active Substance: ALMAGATE
     Indication: Product used for unknown indication
     Route: 048
     Dates: start: 20200705, end: 20200709
  5. PSEUDOEPHEDRINE HYDROCHLORIDE [Suspect]
     Active Substance: PSEUDOEPHEDRINE HYDROCHLORIDE
     Indication: Nasopharyngitis
     Route: 048
     Dates: start: 20200705, end: 20200709

REACTIONS (2)
  - Angioedema [Recovering/Resolving]
  - Off label use [Unknown]

NARRATIVE: CASE EVENT DATE: 20200710
